FAERS Safety Report 4336399-4 (Version None)
Quarter: 2004Q2

REPORT INFORMATION
  Report Type: 
  Country: None (occurrence: None)
  Receive Date: 20040407
  Receipt Date: 20040325
  Transmission Date: 20050107
  Serious: Yes (Other)
  Sender: FDA-Public Use
  Company Number: 2004021640

PATIENT
  Age: 73 Year
  Sex: Female

DRUGS (6)
  1. LIPITOR [Suspect]
     Indication: BLOOD CHOLESTEROL INCREASED
     Dosage: 10 MG (DAILY), ORAL
     Route: 048
     Dates: end: 20040301
  2. CROMOGLICATE SODIUM(CROMOGLICATE SODIUM) [Suspect]
     Indication: HYPERSENSITIVITY
     Dosage: NASAL
     Route: 045
     Dates: end: 20040222
  3. IBUPROFEN [Concomitant]
  4. ESTROGENS CONJUGATED (ESTORGENS CONJUGATED) [Concomitant]
  5. FEXOFENADINE HYDROCHLORIDE [Concomitant]
  6. ACETYLSALICYLIC ACID SRT [Concomitant]

REACTIONS (6)
  - AGEUSIA [None]
  - DIPLOPIA [None]
  - DYSGEUSIA [None]
  - HYPERSENSITIVITY [None]
  - RASH [None]
  - TRANSIENT ISCHAEMIC ATTACK [None]
